FAERS Safety Report 5252666-4 (Version None)
Quarter: 2007Q1

REPORT INFORMATION
  Report Type: 
  Country: None (occurrence: None)
  Receive Date: 20070301
  Receipt Date: 20061106
  Transmission Date: 20070707
  Serious: No
  Sender: FDA-Public Use
  Company Number: US-GLAXOSMITHKLINE-A0626340A

PATIENT
  Age: 42 Year
  Sex: Male
  Weight: 63.6 kg

DRUGS (2)
  1. LAMICTAL [Suspect]
     Dosage: 100MG TWICE PER DAY
     Route: 048
     Dates: start: 20061001
  2. CARBATROL [Concomitant]

REACTIONS (2)
  - ANOREXIA [None]
  - DIPLOPIA [None]
